FAERS Safety Report 12553423 (Version 5)
Quarter: 2018Q2

REPORT INFORMATION
  Report Type: Report from Study
  Country: FR (occurrence: FR)
  Receive Date: 20160713
  Receipt Date: 20180504
  Transmission Date: 20180711
  Serious: Yes (Death, Hospitalization, Other)
  Sender: FDA-Public Use
  Company Number: FR-INCYTE CORPORATION-2016IN004116

PATIENT

DRUGS (1)
  1. JAKAVI [Suspect]
     Active Substance: RUXOLITINIB
     Indication: PRIMARY MYELOFIBROSIS
     Dosage: 20 MG, BID ( 2 DF DAILY)
     Route: 048
     Dates: start: 20160304

REACTIONS (10)
  - Intestinal infarction [Fatal]
  - Anaemia [Unknown]
  - Cardiac arrest [Fatal]
  - Abdominal pain [Not Recovered/Not Resolved]
  - Hypothermia [Fatal]
  - Intestinal dilatation [Unknown]
  - Retroperitoneal haemorrhage [Fatal]
  - Retroperitoneal haematoma [Fatal]
  - Aortic thrombosis [Fatal]
  - Diarrhoea [Not Recovered/Not Resolved]

NARRATIVE: CASE EVENT DATE: 20160316
